FAERS Safety Report 24258315 (Version 3)
Quarter: 2024Q4

REPORT INFORMATION
  Report Type: Spontaneous
  Country: US (occurrence: US)
  Receive Date: 20240828
  Receipt Date: 20241127
  Transmission Date: 20250114
  Serious: Yes (Other)
  Sender: BAYER HEALTHCARE PHARMACEUTICALS INC.
  Company Number: US-BAYER-2024A122879

PATIENT
  Age: 62 Year
  Sex: Male
  Weight: 128 kg

DRUGS (2)
  1. KOVALTRY [Suspect]
     Active Substance: ANTIHEMOPHILIC FACTOR, HUMAN RECOMBINANT
     Indication: Factor VIII deficiency
     Dosage: KOVALTRY 3000 UNITS/INFUSE 2855 UNITS/TIW + PRN
     Route: 042
     Dates: start: 201208
  2. KOVALTRY [Suspect]
     Active Substance: ANTIHEMOPHILIC FACTOR, HUMAN RECOMBINANT
     Indication: Prophylaxis
     Dosage: 2855 IU
     Route: 042
     Dates: start: 202303

REACTIONS (7)
  - Haemorrhage [None]
  - Haemarthrosis [None]
  - Weight increased [None]
  - Haemarthrosis [Recovered/Resolved]
  - Haemarthrosis [Recovered/Resolved]
  - Haemarthrosis [Recovered/Resolved]
  - Feeling abnormal [None]

NARRATIVE: CASE EVENT DATE: 20240823
